FAERS Safety Report 4871629-1 (Version None)
Quarter: 2006Q1

REPORT INFORMATION
  Report Type: 
  Country: None (occurrence: None)
  Receive Date: 20060104
  Receipt Date: 20051221
  Transmission Date: 20060701
  Serious: Yes (Hospitalization)
  Sender: FDA-Public Use
  Company Number: US-AMGEN-US160856

PATIENT
  Sex: Male
  Weight: 69 kg

DRUGS (15)
  1. EPOGEN [Suspect]
     Indication: ANAEMIA
     Route: 058
     Dates: start: 20050201, end: 20051213
  2. IMDUR [Concomitant]
     Dates: start: 20041113
  3. LESCOL [Concomitant]
     Dates: start: 20041113
  4. REMERON [Concomitant]
     Dates: start: 20041113
  5. DITROPAN [Concomitant]
     Dates: start: 20041113
  6. PEPCID [Concomitant]
     Dates: start: 20041113
  7. DICLOFENAC [Concomitant]
     Dates: start: 20041113
  8. LORAZEPAM [Concomitant]
     Dates: start: 20041113
  9. TEMAZEPAM [Concomitant]
     Dates: start: 20041113
  10. METOPROLOL [Concomitant]
     Dates: start: 20041113
  11. NITROGLYCERIN [Concomitant]
     Dates: start: 20041113
  12. ASPIRIN [Concomitant]
     Dates: start: 20041113
  13. TYLENOL [Concomitant]
     Dates: start: 20041113
  14. CALCIUM GLUCONATE [Concomitant]
     Dates: start: 20041113
  15. ASACOL [Concomitant]

REACTIONS (3)
  - ANAEMIA [None]
  - COLON NEOPLASM [None]
  - GASTROINTESTINAL NEOPLASM [None]
